FAERS Safety Report 23066822 (Version 3)
Quarter: 2024Q1

REPORT INFORMATION
  Report Type: Report from Study
  Country: US (occurrence: US)
  Receive Date: 20231016
  Receipt Date: 20240322
  Transmission Date: 20240409
  Serious: Yes (Hospitalization)
  Sender: FDA-Public Use
  Company Number: US-DECIPHERA PHARMACEUTICALS LLC-2023US000925

PATIENT
  Age: 70 Year
  Sex: Female

DRUGS (1)
  1. QINLOCK [Suspect]
     Active Substance: RIPRETINIB
     Indication: Gastrointestinal stromal tumour
     Dosage: 150 MILLIGRAM, QD
     Route: 048
     Dates: start: 20230621

REACTIONS (9)
  - Thrombosis [Unknown]
  - Bladder disorder [Unknown]
  - Fall [Unknown]
  - Pain in extremity [Unknown]
  - Muscle spasms [Unknown]
  - Rhinorrhoea [Unknown]
  - Blood cholesterol increased [Unknown]
  - Dyspepsia [Unknown]
  - Hypertension [Unknown]
